FAERS Safety Report 26111325 (Version 2)
Quarter: 2025Q4

REPORT INFORMATION
  Report Type: Report from Study
  Country: BR (occurrence: BR)
  Receive Date: 20251202
  Receipt Date: 20251202
  Transmission Date: 20260117
  Serious: Yes (Hospitalization, Other)
  Sender: ALEXION PHARMACEUTICALS
  Company Number: BR-AstraZeneca-CH-01001531A

PATIENT
  Age: 41 Year
  Sex: Female

DRUGS (6)
  1. SOLIRIS [Suspect]
     Active Substance: ECULIZUMAB
     Indication: Atypical haemolytic uraemic syndrome
     Dosage: 900 MILLIGRAM, QW
     Dates: start: 20160912, end: 20161003
  2. SOLIRIS [Suspect]
     Active Substance: ECULIZUMAB
     Dosage: 1200 MILLIGRAM, Q2W
     Dates: start: 20161010
  3. LOSARTAN [Concomitant]
     Active Substance: LOSARTAN
     Indication: Chronic kidney disease
     Dosage: UNK
     Route: 065
  4. LOSARTAN [Concomitant]
     Active Substance: LOSARTAN
     Indication: Blood pressure abnormal
  5. NIFEDIPINE [Concomitant]
     Active Substance: NIFEDIPINE
     Indication: Chronic kidney disease
     Dosage: UNK
     Route: 065
  6. NIFEDIPINE [Concomitant]
     Active Substance: NIFEDIPINE
     Indication: Blood pressure abnormal

REACTIONS (6)
  - Azotaemia [Unknown]
  - Pyelonephritis [Unknown]
  - Dysgeusia [Unknown]
  - Hypertension [Unknown]
  - Malaise [Unknown]
  - Product supply issue [Unknown]

NARRATIVE: CASE EVENT DATE: 20180101
